FAERS Safety Report 9629613 (Version 3)
Quarter: 2014Q4

REPORT INFORMATION
  Report Type: Report from Study
  Country: US (occurrence: US)
  Receive Date: 20131017
  Receipt Date: 20141010
  Transmission Date: 20150529
  Serious: Yes (Hospitalization)
  Sender: FDA-Public Use
  Company Number: US-ACTELION-A-NJ2013-89697

PATIENT
  Age: 80 Year
  Sex: Female

DRUGS (18)
  1. WARFARIN [Concomitant]
     Active Substance: WARFARIN
     Dosage: 12.5 MG, QD
     Route: 048
     Dates: start: 201212
  2. PAXIL [Concomitant]
     Active Substance: PAROXETINE HYDROCHLORIDE
     Dosage: 30 MG, QD
     Route: 048
     Dates: start: 2003
  3. ADCIRCA [Concomitant]
     Active Substance: TADALAFIL
     Dosage: 40 MG, QD
     Route: 048
  4. VITAMIN D3 [Concomitant]
     Active Substance: CHOLECALCIFEROL
     Dosage: 2000 IU, BID
     Route: 048
     Dates: start: 2007
  5. HYDRODIURIL [Concomitant]
     Active Substance: HYDROCHLOROTHIAZIDE
     Dosage: 25 MG, QD
     Route: 048
     Dates: start: 2006
  6. GLUCOPHAGE [Concomitant]
     Active Substance: METFORMIN HYDROCHLORIDE
     Dosage: 1000 MG, BID
     Route: 048
     Dates: start: 2006
  7. MAGNESIUM OXIDE. [Concomitant]
     Active Substance: MAGNESIUM OXIDE
     Dosage: 420 MG, BID
     Route: 048
     Dates: start: 2008
  8. TRACLEER [Suspect]
     Active Substance: BOSENTAN\BOSENTAN MONOHYDRATE
     Indication: PULMONARY ARTERIAL HYPERTENSION
     Dosage: 62.5 MG, BID
     Route: 048
     Dates: start: 200711
  9. WARFARIN [Concomitant]
     Active Substance: WARFARIN
     Dosage: 7.5 MG 3 TIMES WEEKLY
     Route: 048
     Dates: start: 201212
  10. CARDIZEM CD [Concomitant]
     Active Substance: DILTIAZEM HYDROCHLORIDE
     Dosage: 240 MG, QD
     Dates: start: 2007
  11. LEVOTHYROXINE [Concomitant]
     Active Substance: LEVOTHYROXINE
     Dosage: 100 MCG, QD
     Route: 048
     Dates: start: 2008
  12. ACETYLCYSTEINE. [Concomitant]
     Active Substance: ACETYLCYSTEINE
     Dosage: 900 MG, BID
     Route: 048
  13. FERROUS SULFATE [Concomitant]
     Active Substance: FERROUS SULFATE\FERROUS SULFATE, DRIED
     Dosage: 325 MG, QD WITH BREAKFAST
     Route: 048
     Dates: start: 2008
  14. ALLOPURINOL. [Concomitant]
     Active Substance: ALLOPURINOL
     Dosage: 100 MG, QD
     Route: 048
     Dates: start: 2007
  15. DIGOXIN. [Concomitant]
     Active Substance: DIGOXIN
     Dosage: 125 MCG, QD
     Route: 048
     Dates: start: 201212
  16. TRACLEER [Suspect]
     Active Substance: BOSENTAN\BOSENTAN MONOHYDRATE
     Dosage: UNK
     Route: 048
     Dates: start: 2007
  17. OMEPRAZOLE. [Concomitant]
     Active Substance: OMEPRAZOLE
     Dosage: 20 MG, BID
     Route: 048
     Dates: start: 2007
  18. BENICAR [Concomitant]
     Active Substance: OLMESARTAN MEDOXOMIL
     Dosage: 40 MG, QD
     Route: 048
     Dates: start: 2008

REACTIONS (14)
  - Fatigue [Unknown]
  - Pulmonary arterial pressure increased [Not Recovered/Not Resolved]
  - Bronchitis [Unknown]
  - Diarrhoea [Not Recovered/Not Resolved]
  - Productive cough [Unknown]
  - Sinus node dysfunction [Unknown]
  - Dyspnoea exertional [Unknown]
  - Nocturia [Unknown]
  - Arthralgia [Unknown]
  - Cardiac pacemaker insertion [Unknown]
  - Joint stiffness [Unknown]
  - Atrial fibrillation [Not Recovered/Not Resolved]
  - Bronchiectasis [Unknown]
  - Atrial flutter [Unknown]

NARRATIVE: CASE EVENT DATE: 201212
